FAERS Safety Report 5564019-X (Version None)
Quarter: 2007Q4

REPORT INFORMATION
  Report Type: 
  Country: None (occurrence: None)
  Receive Date: 20071217
  Receipt Date: 20071212
  Transmission Date: 20080405
  Serious: Yes (Hospitalization, Other)
  Sender: FDA-Public Use
  Company Number: US-PFIZER INC-2007084547

PATIENT
  Sex: Male

DRUGS (1)
  1. CELEBREX [Suspect]
     Indication: NECK PAIN
     Route: 048

REACTIONS (5)
  - ANXIETY [None]
  - DIABETES MELLITUS [None]
  - HYPERTENSION [None]
  - STEVENS-JOHNSON SYNDROME [None]
  - VISION BLURRED [None]
